FAERS Safety Report 5407777-7 (Version None)
Quarter: 2007Q3

REPORT INFORMATION
  Report Type: 
  Country: None (occurrence: None)
  Receive Date: 20070807
  Receipt Date: 20070803
  Transmission Date: 20080115
  Serious: Yes (Hospitalization)
  Sender: FDA-Public Use
  Company Number: JP-SHR-JP-2007-025981

PATIENT
  Age: 10 Year
  Sex: Female
  Weight: 22.4 kg

DRUGS (18)
  1. FLUDARA [Suspect]
     Indication: BONE MARROW CONDITIONING REGIMEN
     Dosage: 25 MG/M2, 1X/DAY
     Route: 042
     Dates: start: 20070705, end: 20070708
  2. ALKERAN [Suspect]
     Indication: BONE MARROW CONDITIONING REGIMEN
     Dosage: 55 MG, 1X/DAY
     Route: 041
     Dates: start: 20070708, end: 20070710
  3. PENTAZOCINE LACTATE [Suspect]
     Indication: PAIN
     Dosage: 12 MG, 1X/DAY
     Route: 041
     Dates: start: 20070711, end: 20070711
  4. ATARAX [Suspect]
     Indication: SEDATION
     Dosage: 20 MG, 1X/DAY
     Route: 041
     Dates: start: 20070711, end: 20070711
  5. GRANISETRON  HCL [Concomitant]
     Dosage: 2 MG, 1X/DAY
     Route: 042
     Dates: start: 20070705, end: 20070710
  6. HEPARIN SODIUM [Concomitant]
     Indication: THROMBOSIS PROPHYLAXIS
     Dosage: 1000 IU, 1X/DAY
     Route: 042
     Dates: start: 20060701
  7. SODIUM BICARBONATE 8.4% [Concomitant]
     Indication: TUMOUR LYSIS SYNDROME
     Dosage: 40 ML, 1X/DAY
     Route: 041
     Dates: start: 20060701
  8. SOLDEM 1 [Concomitant]
     Dosage: UNK, AS REQ'D
     Route: 041
     Dates: start: 20060701
  9. SOLDEM 3AG [Concomitant]
     Dosage: UNK, AS REQ'D
     Route: 041
     Dates: start: 20060701
  10. CEFOZOPRAN [Concomitant]
     Indication: INFECTION PROPHYLAXIS
     Dosage: 2- 3G, 1X/DAY
     Route: 041
     Dates: start: 20060701
  11. FAMOTIDINE [Concomitant]
     Indication: GASTRITIS
     Dosage: 20 MG, 1X/DAY
     Route: 041
     Dates: start: 20060701
  12. THIAMYLAL SODIUM [Concomitant]
     Indication: SEDATION
     Dosage: 100- 200MG, 1X/DAY
     Route: 041
     Dates: start: 20060701
  13. GAMIMUNE N 5% [Concomitant]
     Indication: INFECTION PROPHYLAXIS
     Dosage: 2.5 G, 1X/DAY
     Route: 041
     Dates: start: 20070702
  14. SULFAMETHOXAZOLE [Concomitant]
     Indication: INFECTION PROPHYLAXIS
     Dosage: 2 G, 1X/DAY
     Route: 048
     Dates: start: 20060701
  15. FLUCONAZOLE [Concomitant]
     Indication: INFECTION PROPHYLAXIS
     Dosage: 100 MG, 1X/DAY
     Route: 048
     Dates: start: 20060701
  16. ACYCLOVIR [Concomitant]
     Indication: INFECTION PROPHYLAXIS
     Dosage: 800 MG, 1X/DAY
     Route: 048
     Dates: start: 20070704
  17. POLYMYXIN B SULFATE [Concomitant]
     Indication: INFECTION PROPHYLAXIS
     Dosage: 300 IU, 1X/DAY
     Route: 048
     Dates: start: 20070622
  18. KETOTIFEN FUMARATE [Concomitant]
     Indication: DERMATITIS ATOPIC
     Dosage: 1 MG, 1X/DAY
     Route: 048
     Dates: start: 20070424

REACTIONS (1)
  - ENCEPHALOPATHY [None]
